FAERS Safety Report 25540487 (Version 4)
Quarter: 2025Q4

REPORT INFORMATION
  Report Type: Spontaneous
  Country: US (occurrence: US)
  Receive Date: 20250710
  Receipt Date: 20251009
  Transmission Date: 20260118
  Serious: No
  Sender: BRISTOL-MYERS SQUIBB COMPANY
  Company Number: US-BRISTOL-MYERS SQUIBB COMPANY-2025-097418

PATIENT
  Age: 76 Year
  Sex: Female

DRUGS (1)
  1. REVLIMID [Suspect]
     Active Substance: LENALIDOMIDE
     Indication: Plasma cell myeloma
     Dosage: QD FOR 14 DAYS ON THEN 14 DAY
     Dates: start: 20250926

REACTIONS (7)
  - Bone pain [Unknown]
  - Nasopharyngitis [Unknown]
  - Rhinorrhoea [Unknown]
  - Headache [Unknown]
  - Stress [Unknown]
  - Blood pressure increased [Unknown]
  - COVID-19 [Unknown]

NARRATIVE: CASE EVENT DATE: 20250801
